FAERS Safety Report 9461185 (Version 7)
Quarter: 2014Q2

REPORT INFORMATION
  Report Type: Report from Study
  Country: GB (occurrence: GB)
  Receive Date: 20130816
  Receipt Date: 20140508
  Transmission Date: 20141212
  Serious: Yes (Hospitalization)
  Sender: FDA-Public Use
  Company Number: GB-ROCHE-1257938

PATIENT
  Age: 50 Year
  Sex: Female

DRUGS (54)
  1. PERTUZUMAB [Suspect]
     Indication: HER-2 POSITIVE BREAST CANCER
     Dosage: LOADING DOSE AS PER PROTOCOL
     Route: 042
     Dates: start: 20130516
  2. PERTUZUMAB [Suspect]
     Dosage: MAINTENANCE DOSE AS PER PROTOCOL.?LAST DOSE PRIOR TO EVENT 01/AUG/2013
     Route: 042
  3. TRASTUZUMAB [Suspect]
     Indication: HER-2 POSITIVE BREAST CANCER
     Dosage: 861 MG
     Route: 042
     Dates: start: 20130516
  4. TRASTUZUMAB [Suspect]
     Dosage: MAINTENANCE DOSE?LAST DOSE PRIOR TO EVENT 11/JUL/2013
     Route: 042
     Dates: end: 20130801
  5. TRASTUZUMAB [Suspect]
     Dosage: MAINTENANCE
     Route: 042
     Dates: start: 20130829
  6. PACLITAXEL [Suspect]
     Indication: HER-2 POSITIVE BREAST CANCER
     Dosage: LAST DOSE PRIOR TO EVENT ON 25/JUL/2013
     Route: 042
     Dates: start: 20130516, end: 20130801
  7. PACLITAXEL [Suspect]
     Route: 042
     Dates: start: 20130808
  8. THYROXINE [Concomitant]
     Route: 065
     Dates: start: 200110
  9. DICLOFENAC [Concomitant]
     Route: 065
     Dates: start: 201301
  10. LYRICA [Concomitant]
     Route: 065
     Dates: start: 201304
  11. PARACETAMOL [Concomitant]
     Route: 065
     Dates: start: 201303
  12. SEVREDOL [Concomitant]
     Route: 065
     Dates: start: 201304
  13. SEVREDOL [Concomitant]
     Dosage: PRN
     Route: 065
     Dates: start: 20130711
  14. HYDROCORTISONE [Concomitant]
     Route: 065
     Dates: start: 20130516
  15. RANITIDINE [Concomitant]
     Indication: PREMEDICATION
     Route: 065
     Dates: start: 20130523
  16. METOCLOPRAMIDE [Concomitant]
     Route: 065
     Dates: start: 20130516
  17. METOCLOPRAMIDE [Concomitant]
     Route: 065
     Dates: start: 20130725, end: 20130801
  18. METOCLOPRAMIDE [Concomitant]
     Route: 065
     Dates: start: 20130801
  19. FLUCLOXACILLIN [Concomitant]
     Route: 065
     Dates: start: 20130617
  20. GELCLAIR (UNITED KINGDOM) [Concomitant]
     Route: 065
     Dates: start: 20130619
  21. FUROSEMIDE [Concomitant]
     Route: 065
     Dates: start: 20130516, end: 20130519
  22. FUROSEMIDE [Concomitant]
     Route: 065
     Dates: start: 20130619, end: 20130710
  23. FUROSEMIDE [Concomitant]
     Route: 065
     Dates: start: 20130613, end: 20130618
  24. FUROSEMIDE [Concomitant]
     Route: 065
     Dates: start: 20130524, end: 20130528
  25. FUROSEMIDE [Concomitant]
     Route: 065
     Dates: start: 20130711
  26. ONDANSETRON [Concomitant]
     Route: 065
     Dates: start: 20130711
  27. CORSODYL [Concomitant]
     Route: 065
     Dates: start: 20130711
  28. FERROUS FUMARATE [Concomitant]
     Route: 065
     Dates: start: 20130711
  29. HYPROMELLOSE [Concomitant]
     Route: 047
     Dates: start: 20130801
  30. LEVOTHYROXINE [Concomitant]
     Route: 065
     Dates: start: 20130621
  31. LEVOTHYROXINE [Concomitant]
     Route: 065
     Dates: start: 200110, end: 20130621
  32. PREGABALIN [Concomitant]
     Route: 065
     Dates: start: 20130801
  33. LOPERAMIDE [Concomitant]
     Route: 065
     Dates: start: 20130523, end: 20130526
  34. LOPERAMIDE [Concomitant]
     Route: 065
     Dates: start: 20130729
  35. DEXAMETHASONE [Concomitant]
     Route: 065
     Dates: start: 20130505, end: 20130510
  36. DEXAMETHASONE [Concomitant]
     Route: 065
     Dates: start: 20130511, end: 20130517
  37. DEXAMETHASONE [Concomitant]
     Route: 065
     Dates: start: 20130520, end: 20130521
  38. DEXAMETHASONE [Concomitant]
     Route: 065
     Dates: start: 20130521, end: 20130524
  39. DEXAMETHASONE [Concomitant]
     Route: 065
     Dates: start: 20130525, end: 20130612
  40. DEXAMETHASONE [Concomitant]
     Route: 065
     Dates: start: 20130401, end: 20130505
  41. KETAMINE [Concomitant]
  42. OXYCODONE [Concomitant]
  43. OXYCONTIN [Concomitant]
  44. AMOXICILLIN [Concomitant]
     Route: 065
     Dates: start: 20131212, end: 20131218
  45. AMOXICILLIN [Concomitant]
     Route: 065
     Dates: start: 20140127, end: 20140203
  46. CHLORPHENAMINE [Concomitant]
  47. BISACODYL [Concomitant]
     Route: 065
     Dates: start: 20131128
  48. OMEPRAZOLE [Concomitant]
     Route: 065
     Dates: start: 20130712
  49. SEVREDOL [Concomitant]
     Dosage: AS REQUIRED
     Route: 065
     Dates: start: 20130711, end: 20131008
  50. KETAMINE [Concomitant]
     Route: 065
     Dates: start: 20131127
  51. KETAMINE [Concomitant]
     Route: 065
     Dates: start: 20130905, end: 20130911
  52. KETAMINE [Concomitant]
     Route: 042
     Dates: start: 20130904, end: 20130904
  53. GENTAMYCIN [Concomitant]
     Route: 065
     Dates: start: 20140311, end: 20140312
  54. OSELTAMIVIR [Concomitant]
     Route: 065
     Dates: start: 20140312, end: 20140318

REACTIONS (1)
  - Hypotension [Recovered/Resolved]
